FAERS Safety Report 5171131-6 (Version None)
Quarter: 2006Q4

REPORT INFORMATION
  Report Type: 
  Country: None (occurrence: None)
  Receive Date: 20060830
  Receipt Date: 20060830
  Transmission Date: 20070319
  Serious: No
  Sender: FDA-Public Use
  Company Number: None

PATIENT
  Age: 57 Year
  Sex: Female

DRUGS (2)
  1. HYDROXYZINE HYDROCHLORIDE [Suspect]
     Dosage: CAPSULE
  2. HYDRALAZINE HYDROCHLORIDE [Suspect]
     Dosage: TABLET

REACTIONS (8)
  - DISORIENTATION [None]
  - DIZZINESS [None]
  - DRUG DISPENSING ERROR [None]
  - DYSARTHRIA [None]
  - MEDICATION ERROR [None]
  - NAUSEA [None]
  - TREMOR [None]
  - WRONG DRUG ADMINISTERED [None]
